FAERS Safety Report 5251618-8 (Version None)
Quarter: 2007Q1

REPORT INFORMATION
  Report Type: 
  Country: None (occurrence: None)
  Receive Date: 20070228
  Receipt Date: 20060927
  Transmission Date: 20070707
  Serious: No
  Sender: FDA-Public Use
  Company Number: US-GLAXOSMITHKLINE-A0621661A

PATIENT
  Sex: Female

DRUGS (3)
  1. LAMICTAL [Suspect]
     Indication: BIPOLAR DISORDER
     Dosage: 25MG PER DAY
     Route: 048
  2. TOPAMAX [Concomitant]
  3. WELLBUTRIN XL [Concomitant]

REACTIONS (2)
  - MIGRAINE [None]
  - RASH [None]
